FAERS Safety Report 24378343 (Version 1)
Quarter: 2024Q3

REPORT INFORMATION
  Report Type: Spontaneous
  Country: US (occurrence: US)
  Receive Date: 20240930
  Receipt Date: 20240930
  Transmission Date: 20241017
  Serious: No
  Sender: ROCHE
  Company Number: US-ROCHE-10000088096

PATIENT
  Age: 14 Year
  Sex: Male

DRUGS (1)
  1. XOLAIR [Suspect]
     Active Substance: OMALIZUMAB
     Indication: Food allergy
     Dosage: FORM STRENGTH: 300 MG/2ML
     Route: 058

REACTIONS (3)
  - Gastrointestinal disorder [Unknown]
  - Pain [Unknown]
  - Fatigue [Unknown]
